FAERS Safety Report 17411771 (Version 1)
Quarter: 2020Q1

REPORT INFORMATION
  Report Type: Spontaneous
  Country: NL (occurrence: NL)
  Receive Date: 20200213
  Receipt Date: 20200213
  Transmission Date: 20200409
  Serious: Yes (Other)
  Sender: FDA-Public Use
  Company Number: NL-LEADING PHARMA LLC-NL-2020LEALIT00019

PATIENT

DRUGS (1)
  1. FUROSEMIDE TABLETS USP [Suspect]
     Active Substance: FUROSEMIDE

REACTIONS (4)
  - Dyspnoea [Unknown]
  - Oedema [Unknown]
  - Cardiac failure congestive [Unknown]
  - Therapy change [Unknown]
